FAERS Safety Report 6060220-X (Version None)
Quarter: 2009Q1

REPORT INFORMATION
  Report Type: 
  Country: None (occurrence: None)
  Receive Date: 20090129
  Receipt Date: 20090119
  Transmission Date: 20090719
  Serious: Yes (Other)
  Sender: FDA-Public Use
  Company Number: 1000003657

PATIENT
  Sex: Male

DRUGS (2)
  1. ESCITALOPRAM [Suspect]
     Dosage: ORAL
     Route: 048
  2. AMBIEN [Concomitant]

REACTIONS (2)
  - DRUG INTERACTION [None]
  - ELECTROCARDIOGRAM QT PROLONGED [None]
